FAERS Safety Report 8614535-9 (Version None)
Quarter: 2012Q3

REPORT INFORMATION
  Report Type: 
  Country: None (occurrence: None)
  Receive Date: 20120809
  Receipt Date: 20120731
  Transmission Date: 20120928
  Serious: Yes (Hospitalization)
  Sender: FDA-Public Use
  Company Number: 2012-002796

PATIENT
  Age: 67 Year
  Sex: Female

DRUGS (1)
  1. ACTONEL [Suspect]
     Dosage: 1 DF, 2 IN 1 MONTH, ORAL
     Route: 048
     Dates: start: 20120101, end: 20120501

REACTIONS (4)
  - MYALGIA [None]
  - MACULAR HOLE [None]
  - ARTHRALGIA [None]
  - VISUAL ACUITY REDUCED [None]
